FAERS Safety Report 19396775 (Version 1)
Quarter: 2021Q2

REPORT INFORMATION
  Report Type: Report from Study
  Country: US (occurrence: US)
  Receive Date: 20210609
  Receipt Date: 20210609
  Transmission Date: 20210717
  Serious: Yes (Hospitalization)
  Sender: FDA-Public Use
  Company Number: US-EISAI MEDICAL RESEARCH-EC-2021-094048

PATIENT
  Age: 57 Year
  Sex: Female
  Weight: 104 kg

DRUGS (38)
  1. LENVIMA [Suspect]
     Active Substance: LENVATINIB
     Dosage: DOSE REDUCED
     Route: 048
     Dates: start: 2021
  2. MAGOX [Concomitant]
  3. MORPHINE SULFATE. [Concomitant]
     Active Substance: MORPHINE SULFATE
  4. VITAMIN D3 [Concomitant]
     Active Substance: CHOLECALCIFEROL
  5. CHLORTHALIDONE. [Concomitant]
     Active Substance: CHLORTHALIDONE
  6. LOSARTAN. [Concomitant]
     Active Substance: LOSARTAN
  7. LENVIMA [Suspect]
     Active Substance: LENVATINIB
     Route: 048
     Dates: start: 2021, end: 2021
  8. MAGNESIUM OXIDE. [Concomitant]
     Active Substance: MAGNESIUM OXIDE
  9. VITAMIN D2 [Concomitant]
     Active Substance: ERGOCALCIFEROL
  10. NAPROXEN. [Concomitant]
     Active Substance: NAPROXEN
  11. OXYCODONE HYDROCHLORIDE. [Concomitant]
     Active Substance: OXYCODONE HYDROCHLORIDE
  12. ALEVE [Concomitant]
     Active Substance: NAPROXEN SODIUM
     Dosage: DOSE AND FREQUENCY UNKNOWN.
  13. CRESTOR [Concomitant]
     Active Substance: ROSUVASTATIN CALCIUM
  14. LENVIMA [Suspect]
     Active Substance: LENVATINIB
     Indication: BREAST CANCER FEMALE
     Route: 048
     Dates: start: 20210118, end: 2021
  15. PROPRANOLOL HCL [Concomitant]
     Active Substance: PROPRANOLOL HYDROCHLORIDE
  16. CALCIUM CARBONATE. [Concomitant]
     Active Substance: CALCIUM CARBONATE
  17. GABAPENTIN. [Concomitant]
     Active Substance: GABAPENTIN
  18. ONDANSETRON [Concomitant]
     Active Substance: ONDANSETRON
  19. FENTANYL. [Concomitant]
     Active Substance: FENTANYL
  20. BENADRYL [Concomitant]
     Active Substance: DIPHENHYDRAMINE HYDROCHLORIDE
  21. CALCIUM CITRATE [Concomitant]
     Active Substance: CALCIUM CITRATE
  22. ZINC. [Concomitant]
     Active Substance: ZINC
  23. PREDNISONE. [Concomitant]
     Active Substance: PREDNISONE
  24. LENVIMA [Suspect]
     Active Substance: LENVATINIB
     Route: 048
     Dates: start: 2021, end: 202106
  25. CALCIUM CITRATE?D3?MAGNESIUM [Concomitant]
  26. BIOTIN [Concomitant]
     Active Substance: BIOTIN
  27. HYDROMORPHONE HCL [Concomitant]
     Active Substance: HYDROMORPHONE HYDROCHLORIDE
  28. MIRALAX [Concomitant]
     Active Substance: POLYETHYLENE GLYCOL 3350
  29. SENOKOT [Concomitant]
     Active Substance: SENNOSIDES
  30. OXYCONTIN [Concomitant]
     Active Substance: OXYCODONE HYDROCHLORIDE
  31. CHEWABLE IRON [Concomitant]
  32. KEYTRUDA [Concomitant]
     Active Substance: PEMBROLIZUMAB
  33. PROPRANOLOL [Concomitant]
     Active Substance: PROPRANOLOL HYDROCHLORIDE
  34. PSYLLIUM HUSK. [Concomitant]
     Active Substance: PSYLLIUM HUSK
  35. FERROUS SULFATE. [Concomitant]
     Active Substance: FERROUS SULFATE
  36. LORAZEPAM. [Concomitant]
     Active Substance: LORAZEPAM
  37. METOPROLOL SUCCINATE. [Concomitant]
     Active Substance: METOPROLOL SUCCINATE
  38. ZOLPIDEM TARTRATE. [Concomitant]
     Active Substance: ZOLPIDEM TARTRATE

REACTIONS (3)
  - Pain in extremity [Recovered/Resolved]
  - Dehydration [Unknown]
  - Arthralgia [Recovered/Resolved]

NARRATIVE: CASE EVENT DATE: 202106
